FAERS Safety Report 4285936-7 (Version None)
Quarter: 2004Q1

REPORT INFORMATION
  Report Type: 
  Country: None (occurrence: None)
  Receive Date: 20040203
  Receipt Date: 20040121
  Transmission Date: 20041129
  Serious: Yes (Other)
  Sender: FDA-Public Use
  Company Number: 2004004350

PATIENT
  Age: 72 Year
  Sex: Male
  Weight: 73.9363 kg

DRUGS (3)
  1. TIKOSYN [Suspect]
     Indication: ATRIAL FIBRILLATION
     Dosage: 500 MCG (BID); ORAL
     Route: 048
     Dates: start: 20030101
  2. TOLTERODINE L-TARTRATE [Concomitant]
  3. LANSOPRAZOLE [Concomitant]

REACTIONS (5)
  - COLONIC POLYP [None]
  - CONDITION AGGRAVATED [None]
  - DIZZINESS [None]
  - DYSPNOEA [None]
  - GLAUCOMA [None]
